FAERS Safety Report 8380785-2 (Version None)
Quarter: 2012Q2

REPORT INFORMATION
  Report Type: 
  Country: None (occurrence: None)
  Receive Date: 20120523
  Receipt Date: 20120515
  Transmission Date: 20120825
  Serious: Yes (Other)
  Sender: FDA-Public Use
  Company Number: NL-BAYER-2012-047146

PATIENT
  Age: 22 Year
  Sex: Female

DRUGS (4)
  1. VALDOXAN [Suspect]
     Indication: DEPRESSION
     Dosage: 25 MG, UNK
     Dates: start: 20120213
  2. DOXYCYCLINE [Concomitant]
  3. OMEPRAZOLE [Concomitant]
     Dosage: UNK
     Dates: start: 20120127
  4. YAZ [Suspect]
     Indication: CONTRACEPTION
     Dosage: 1 DF, QD
     Dates: start: 20120219

REACTIONS (2)
  - ABORTION SPONTANEOUS [None]
  - PREGNANCY ON ORAL CONTRACEPTIVE [None]
